FAERS Safety Report 6427645-1 (Version None)
Quarter: 2009Q4

REPORT INFORMATION
  Report Type: 
  Country: None (occurrence: None)
  Receive Date: 20091104
  Receipt Date: 20091027
  Transmission Date: 20100525
  Serious: Yes (Hospitalization)
  Sender: FDA-Public Use
  Company Number: DE-ABBOTT-09P-062-0605173-00

PATIENT
  Sex: Female
  Weight: 75 kg

DRUGS (5)
  1. HUMIRA [Suspect]
     Indication: RHEUMATOID ARTHRITIS
     Route: 058
  2. LEFLUNOMIDE [Concomitant]
     Indication: RHEUMATOID ARTHRITIS
  3. STEROIDS [Concomitant]
     Indication: RHEUMATOID ARTHRITIS
     Dates: start: 20081201
  4. NSAID'S [Concomitant]
     Indication: DRUG USE FOR UNKNOWN INDICATION
  5. SYSTEMIC GLUCOCORTICOIDS [Concomitant]
     Indication: DRUG USE FOR UNKNOWN INDICATION

REACTIONS (1)
  - INTERVERTEBRAL DISC PROTRUSION [None]
